FAERS Safety Report 23190576 (Version 1)
Quarter: 2023Q4

REPORT INFORMATION
  Report Type: Spontaneous
  Country: CA (occurrence: CA)
  Receive Date: 20231116
  Receipt Date: 20231116
  Transmission Date: 20240110
  Serious: Yes (Hospitalization, Other)
  Sender: FDA-Public Use
  Company Number: CA-CELLTRION INC.-2023CA018791

PATIENT

DRUGS (5)
  1. INFLECTRA [Suspect]
     Active Substance: INFLIXIMAB-DYYB
     Indication: Colitis ulcerative
     Dosage: 700MG THEN 400MG ONGOING (INDUCTION WEEK 0, 2, 6 THEN Q8 WEEKS)
     Route: 042
     Dates: start: 20230927
  2. INFLECTRA [Suspect]
     Active Substance: INFLIXIMAB-DYYB
     Dosage: 700MG THEN 400MG ONGOING (INDUCTION WEEK 0, 2, 6 THEN Q8 WEEKS)
     Route: 042
     Dates: start: 20231011
  3. INFLECTRA [Suspect]
     Active Substance: INFLIXIMAB-DYYB
     Dosage: AFTER 3 WEEKS AND 6 DAYS (700MG THEN 400MG ONGOING (INDUCTION WEEK 0, 2, 6 THEN Q8 WEEKS)
     Route: 042
     Dates: start: 20231107
  4. PREDNISONE [Concomitant]
     Active Substance: PREDNISONE
     Dosage: 1 DF
     Dates: start: 202308
  5. METHOTREXATE [Concomitant]
     Active Substance: METHOTREXATE
     Dosage: 1 DF, 12.5MG
     Dates: start: 20230922

REACTIONS (6)
  - Phlebitis [Not Recovered/Not Resolved]
  - Pulmonary embolism [Not Recovered/Not Resolved]
  - Off label use [Unknown]
  - Intentional product use issue [Unknown]
  - Off label use [Unknown]
  - Condition aggravated [Not Recovered/Not Resolved]

NARRATIVE: CASE EVENT DATE: 20231017
